FAERS Safety Report 10511357 (Version 1)
Quarter: 2014Q3

REPORT INFORMATION
  Report Type: Spontaneous
  Country: US (occurrence: None)
  Receive Date: 20140915
  Receipt Date: 20140915
  Transmission Date: 20150326
  Serious: Yes (Other)
  Sender: FDA-Public Use
  Company Number: 2014-US-008140

PATIENT
  Age: 48 Year
  Sex: Female

DRUGS (3)
  1. XYREM [Suspect]
     Active Substance: SODIUM OXYBATE
     Indication: NARCOLEPSY
     Route: 048
     Dates: start: 201007, end: 2010
  2. ALL OTHER THERAPEUTIC PRODUCTS (UNSPECIFIED OTHER MEDICATIONS) [Concomitant]
  3. ANTIDEPRESSANTS [Suspect]
     Active Substance: UNSPECIFIED INGREDIENT
     Indication: DEPRESSION

REACTIONS (2)
  - Suicidal ideation [None]
  - Insomnia [None]

NARRATIVE: CASE EVENT DATE: 2014
